FAERS Safety Report 23432564 (Version 1)
Quarter: 2024Q1

REPORT INFORMATION
  Report Type: Report from Study
  Country: TR (occurrence: TR)
  Receive Date: 20240123
  Receipt Date: 20240123
  Transmission Date: 20240410
  Serious: Yes (Life-Threatening, Hospitalization, Other)
  Sender: FDA-Public Use
  Company Number: TR-PFIZER INC-PV202400009156

PATIENT
  Age: 44 Year
  Sex: Female

DRUGS (2)
  1. SIROLIMUS [Suspect]
     Active Substance: SIROLIMUS
     Indication: Immunosuppression
     Dosage: UNK
  2. MYCOPHENOLATE MOFETIL [Suspect]
     Active Substance: MYCOPHENOLATE MOFETIL
     Indication: Immunosuppression
     Dosage: UNK

REACTIONS (3)
  - Thrombotic microangiopathy [Unknown]
  - Kidney transplant rejection [Unknown]
  - Drug ineffective [Unknown]
